FAERS Safety Report 8042726-7 (Version None)
Quarter: 2012Q1

REPORT INFORMATION
  Report Type: 
  Country: None (occurrence: None)
  Receive Date: 20120112
  Receipt Date: 20120110
  Transmission Date: 20120608
  Serious: Yes (Hospitalization, Other)
  Sender: FDA-Public Use
  Company Number: US-BAYER-2011-115118

PATIENT
  Age: 50 Year
  Sex: Female

DRUGS (9)
  1. OTHER MINERAL SUPPLEMENTS [Concomitant]
     Dosage: UNK UNK, BID
     Route: 048
  2. VITAMIN D [Concomitant]
     Dosage: 50000 U, OW FOR 90 DAYS
     Route: 048
  3. CLONAZEPAM [Concomitant]
     Dosage: 0.5 MG, UNK
  4. AMOXICILLIN [Concomitant]
     Dosage: 500 MG, UNK
  5. LOVASTATIN [Concomitant]
     Dosage: 40 MG, HS
  6. CALCIUM AND MAGNESIUM [Concomitant]
     Dosage: 750MG-465MG TABLET, EVERY 12 HOURS
     Route: 048
  7. IBUPROFEN [Concomitant]
     Dosage: 800 MG, UNK
  8. PAROXETINE [Concomitant]
     Dosage: 1 DF, QD FOR 90 DAYS
     Route: 048
  9. BETASERON [Suspect]
     Indication: MULTIPLE SCLEROSIS
     Dosage: 8 MIU EVERY OTHER DAY WITH BETAJECT
     Route: 058
     Dates: start: 19960212

REACTIONS (1)
  - CEREBROVASCULAR ACCIDENT [None]
